FAERS Safety Report 5360812-7 (Version None)
Quarter: 2007Q2

REPORT INFORMATION
  Report Type: 
  Country: None (occurrence: None)
  Receive Date: 20070618
  Receipt Date: 20070612
  Transmission Date: 20071010
  Serious: Yes (Hospitalization)
  Sender: FDA-Public Use
  Company Number: FRWYE833012JUN07

PATIENT
  Age: 1 Year
  Sex: Male
  Weight: 11 kg

DRUGS (12)
  1. REFACTO [Suspect]
     Indication: FACTOR VIII DEFICIENCY
     Dosage: 2500 IU
     Route: 042
     Dates: start: 20070308, end: 20070308
  2. REFACTO [Suspect]
     Route: 042
     Dates: start: 20070309, end: 20070309
  3. REFACTO [Suspect]
     Dosage: A TOTAL DOSE OF 1500 IU
     Route: 042
     Dates: start: 20070313, end: 20070316
  4. REFACTO [Suspect]
     Dosage: 2500 IU
     Route: 042
     Dates: start: 20070503, end: 20070503
  5. REFACTO [Suspect]
     Dosage: 1500 IU
     Route: 042
     Dates: start: 20070504, end: 20070504
  6. REFACTO [Suspect]
     Dosage: 2000 IU
     Route: 042
     Dates: start: 20070505, end: 20070505
  7. REFACTO [Suspect]
     Dosage: 1000 IU
     Route: 042
     Dates: start: 20070506, end: 20070506
  8. REFACTO [Suspect]
     Dosage: 1500 IU
     Route: 042
     Dates: start: 20070507, end: 20070507
  9. REFACTO [Suspect]
     Dosage: 500 IU
     Route: 042
     Dates: start: 20070508, end: 20070508
  10. REFACTO [Suspect]
     Dosage: 1250 IU
     Route: 042
     Dates: start: 20070509, end: 20070509
  11. REFACTO [Suspect]
     Dosage: 1000 IU
     Route: 042
     Dates: start: 20070510, end: 20070510
  12. REFACTO [Suspect]
     Dosage: A TOTAL DOSE OF 9000 IU
     Route: 042
     Dates: start: 20070319, end: 20070514

REACTIONS (1)
  - FACTOR VIII INHIBITION [None]
